FAERS Safety Report 21596427 (Version 1)
Quarter: 2022Q4

REPORT INFORMATION
  Report Type: Spontaneous
  Country: GB (occurrence: GB)
  Receive Date: 20221115
  Receipt Date: 20221115
  Transmission Date: 20230113
  Serious: Yes (Other)
  Sender: FDA-Public Use
  Company Number: None

PATIENT
  Age: 65 Year
  Sex: Male
  Weight: 67 kg

DRUGS (9)
  1. AMITRIPTYLINE [Suspect]
     Active Substance: AMITRIPTYLINE
     Indication: Product used for unknown indication
     Dates: start: 20220106
  2. BUDESONIDE [Concomitant]
     Active Substance: BUDESONIDE
     Dosage: ASD
     Dates: start: 20220515
  3. FENBID [Concomitant]
     Dosage: APPLY 3 TIMES/DAY
     Dates: start: 20220803, end: 20220804
  4. FENOFIBRATE [Concomitant]
     Active Substance: FENOFIBRATE
     Dosage: ONE TO BE TAKEN DAILY
     Dates: start: 20220515
  5. FLUCLOXACILLIN [Concomitant]
     Active Substance: FLUCLOXACILLIN
     Dosage: TAKE ONE 4 TIMES/DAY
     Dates: start: 20220916, end: 20220923
  6. FUSIDIC ACID [Concomitant]
     Active Substance: FUSIDIC ACID
     Dosage: USE AS DIRECTED
     Dates: start: 20220916, end: 20221007
  7. LOSARTAN [Concomitant]
     Active Substance: LOSARTAN
     Dosage: TAKE ONE DAILY
     Dates: start: 20220530
  8. METFORMIN [Concomitant]
     Active Substance: METFORMIN HYDROCHLORIDE
     Dosage: 1 TDS
     Dates: start: 20220515
  9. VENTOLIN [Concomitant]
     Active Substance: ALBUTEROL SULFATE
     Dosage: INHALE 2 DOSES AS NEEDED - ONLY ISSUE EVERY THR...
     Dates: start: 20220515

REACTIONS (3)
  - Dizziness [Recovered/Resolved]
  - Confusional state [Recovered/Resolved]
  - Disturbance in attention [Recovered/Resolved]

NARRATIVE: CASE EVENT DATE: 20220106
